FAERS Safety Report 4369518-4 (Version None)
Quarter: 2004Q2

REPORT INFORMATION
  Report Type: 
  Country: None (occurrence: None)
  Receive Date: 20040527
  Receipt Date: 20040512
  Transmission Date: 20050107
  Serious: Yes (Disabling, Other)
  Sender: FDA-Public Use
  Company Number: USA040567333

PATIENT
  Age: 33 Year
  Sex: Female
  Weight: 90 kg

DRUGS (2)
  1. ILETIN-PORK NPH INSULIN (INSULIN, ANIMAL) [Suspect]
     Dates: start: 19800101, end: 19960101
  2. GLUCOPHAGE [Concomitant]

REACTIONS (2)
  - BLINDNESS [None]
  - VISUAL DISTURBANCE [None]
